FAERS Safety Report 14199386 (Version 1)
Quarter: 2017Q4

REPORT INFORMATION
  Report Type: Spontaneous
  Country: US (occurrence: None)
  Receive Date: 20171116
  Receipt Date: 20171116
  Transmission Date: 20180321
  Serious: No
  Sender: FDA-Public Use
  Company Number: None

PATIENT
  Age: 76 Year
  Sex: Male

DRUGS (1)
  1. RASUVO [Suspect]
     Active Substance: METHOTREXATE SODIUM
     Indication: RHEUMATOID ARTHRITIS
     Dosage: 10MG/.2ML
     Route: 058
     Dates: start: 20171026

REACTIONS (3)
  - Stomatitis [None]
  - Oral mucosal blistering [None]
  - Lip swelling [None]

NARRATIVE: CASE EVENT DATE: 20171027
